FAERS Safety Report 6357394-X (Version None)
Quarter: 2009Q3

REPORT INFORMATION
  Report Type: 
  Country: None (occurrence: None)
  Receive Date: 20090916
  Receipt Date: 20090910
  Transmission Date: 20100115
  Serious: Yes (Death)
  Sender: FDA-Public Use
  Company Number: US-CELGENEUS-163-21880-09081898

PATIENT
  Sex: Female

DRUGS (3)
  1. REVLIMID [Suspect]
     Indication: MYELODYSPLASTIC SYNDROME
     Route: 048
     Dates: start: 20080701, end: 20090716
  2. REVLIMID [Suspect]
     Route: 048
     Dates: start: 20060914, end: 20070201
  3. REVLIMID [Suspect]
     Route: 048
     Dates: start: 20070301, end: 20080201

REACTIONS (2)
  - CARDIAC ARREST [None]
  - DIARRHOEA [None]
